FAERS Safety Report 6153355-4 (Version None)
Quarter: 2009Q2

REPORT INFORMATION
  Report Type: 
  Country: None (occurrence: None)
  Receive Date: 20090409
  Receipt Date: 20090409
  Transmission Date: 20091009
  Serious: Yes (Death)
  Sender: FDA-Public Use
  Company Number: None

PATIENT
  Sex: Male

DRUGS (3)
  1. TPN ELECTROLYTES IN PLASTIC CONTAINER [Suspect]
     Dates: start: 20070826, end: 20070909
  2. TPN ELECTROLYTES IN PLASTIC CONTAINER [Suspect]
     Dates: start: 20070916, end: 20070919
  3. SODIUM CHLORIDE [Suspect]

REACTIONS (7)
  - BLOOD SODIUM INCREASED [None]
  - DEATH NEONATAL [None]
  - HAEMATOCHEZIA [None]
  - INCORRECT DOSE ADMINISTERED [None]
  - INFANTILE APNOEIC ATTACK [None]
  - NEONATAL DISORDER [None]
  - NEONATAL TACHYCARDIA [None]
